FAERS Safety Report 21470757 (Version 1)
Quarter: 2022Q4

REPORT INFORMATION
  Report Type: Spontaneous
  Country: IT (occurrence: IT)
  Receive Date: 20221018
  Receipt Date: 20221018
  Transmission Date: 20230113
  Serious: Yes (Life-Threatening, Hospitalization, Other)
  Sender: FDA-Public Use
  Company Number: IT-EMA-DD-20221004-7180169-065534

PATIENT
  Age: 65 Year
  Sex: Male

DRUGS (8)
  1. OXALIPLATIN [Suspect]
     Active Substance: OXALIPLATIN
     Indication: Metastases to lymph nodes
     Dosage: 104 MILLIGRAM/SQ. METER, CYCLICAL(DAY 1 EVERY 3 WEEKS)
     Route: 065
     Dates: start: 20190926
  2. OXALIPLATIN [Suspect]
     Active Substance: OXALIPLATIN
     Indication: Metastases to bone
  3. OXALIPLATIN [Suspect]
     Active Substance: OXALIPLATIN
     Indication: Neuroendocrine tumour of the lung metastatic
  4. OXALIPLATIN [Suspect]
     Active Substance: OXALIPLATIN
     Indication: Carcinoid tumour pulmonary
  5. OXALIPLATIN [Suspect]
     Active Substance: OXALIPLATIN
     Indication: Metastases to liver
  6. CAPECITABINE [Suspect]
     Active Substance: CAPECITABINE
     Indication: Neuroendocrine tumour of the lung metastatic
     Dosage: 1.6 GRAM PER SQUARE METRE, CYCLICAL
     Route: 065
     Dates: start: 20190926, end: 201910
  7. CAPECITABINE [Suspect]
     Active Substance: CAPECITABINE
     Indication: Metastases to bone
  8. CAPECITABINE [Suspect]
     Active Substance: CAPECITABINE
     Indication: Carcinoid tumour pulmonary

REACTIONS (1)
  - Hyperammonaemic encephalopathy [Recovered/Resolved]

NARRATIVE: CASE EVENT DATE: 20191007
